FAERS Safety Report 21574223 (Version 1)
Quarter: 2022Q4

REPORT INFORMATION
  Report Type: Spontaneous
  Country: US (occurrence: None)
  Receive Date: 20221109
  Receipt Date: 20221109
  Transmission Date: 20230113
  Serious: No
  Sender: FDA-Public Use
  Company Number: 2022A346278

PATIENT
  Sex: Female
  Weight: 61.7 kg

DRUGS (1)
  1. BRILINTA [Suspect]
     Active Substance: TICAGRELOR
     Indication: Complication associated with device
     Route: 048

REACTIONS (2)
  - Contusion [Unknown]
  - Drug-device interaction [Unknown]
